FAERS Safety Report 19931781 (Version 3)
Quarter: 2022Q1

REPORT INFORMATION
  Report Type: Report from Study
  Country: KR (occurrence: KR)
  Receive Date: 20211008
  Receipt Date: 20220121
  Transmission Date: 20220423
  Serious: Yes (Other)
  Sender: FDA-Public Use
  Company Number: KR-AMGEN-KORNI2021152513

PATIENT
  Age: 57 Year
  Sex: Male
  Weight: 60.3 kg

DRUGS (29)
  1. CARFILZOMIB [Suspect]
     Active Substance: CARFILZOMIB
     Indication: Plasma cell myeloma
     Dosage: 45 MILLIGRAM
     Route: 042
     Dates: start: 20201208
  2. LENALIDOMIDE [Suspect]
     Active Substance: LENALIDOMIDE
     Indication: Plasma cell myeloma
     Dosage: 40 MILLIGRAM
     Route: 065
     Dates: start: 20210216
  3. DEXAMETHASONE [Concomitant]
     Active Substance: DEXAMETHASONE
     Indication: Plasma cell myeloma
     Dosage: 20 MILLIGRAM
     Dates: start: 20210202
  4. LASIX [Concomitant]
     Active Substance: FUROSEMIDE
     Dosage: 10 MILLIGRAM
     Dates: start: 20210202, end: 20210217
  5. ASPIRIN [Concomitant]
     Active Substance: ASPIRIN
     Dosage: 100 MILLIGRAM
     Dates: start: 20200919
  6. LEFEXIN [Concomitant]
     Dosage: 100 MILLIGRAM
     Dates: start: 20200903
  7. VACRAX [ACICLOVIR] [Concomitant]
     Dosage: 200 MILLIGRAM
     Dates: start: 20200728
  8. FLUCOZOLE [Concomitant]
     Dosage: 100 MILLIGRAM
     Dates: start: 20200728
  9. DULOXTA [Concomitant]
     Dosage: 60 MILLIGRAM
     Dates: start: 20201007
  10. NEWRABELL [Concomitant]
     Dosage: 10 MILLIGRAM
     Dates: start: 20210119, end: 20210301
  11. GASPIRAN [Concomitant]
     Dosage: 5 MILLIGRAM
     Dates: start: 20200903
  12. LACTULOSE [Concomitant]
     Active Substance: LACTULOSE
     Dosage: 15 MILLIGRAM
     Dates: start: 20201222
  13. NALOXONE HYDROCHLORIDE\OXYCODONE HYDROCHLORIDE [Concomitant]
     Active Substance: NALOXONE HYDROCHLORIDE\OXYCODONE HYDROCHLORIDE
     Dosage: 40 MILLIGRAM
     Dates: start: 20201222
  14. MAGNESIUM OXIDE [Concomitant]
     Active Substance: MAGNESIUM OXIDE
     Dosage: 500 MILLIGRAM
     Dates: start: 20210105
  15. LECTACIN [Concomitant]
     Dosage: 125 MILLIGRAM
     Dates: start: 20210301, end: 20210302
  16. CYMBALTA [Concomitant]
     Active Substance: DULOXETINE HYDROCHLORIDE
     Dosage: 60 MILLIGRAM
     Dates: start: 20210111
  17. MOSAPRIDE CITRATE [Concomitant]
     Active Substance: MOSAPRIDE CITRATE
     Dosage: 5 MILLIGRAM
     Dates: start: 20210301, end: 20210317
  18. CALCIUM GLUCONATE [Concomitant]
     Active Substance: CALCIUM GLUCONATE
     Dosage: 1 GRAM
     Dates: start: 20210228, end: 20210228
  19. HUMULIN R [Concomitant]
     Active Substance: INSULIN HUMAN
     Dosage: 10 INTERNATIONAL UNIT
     Dates: start: 20210228, end: 20210228
  20. LYRICA [Concomitant]
     Active Substance: PREGABALIN
     Dosage: 25 MILLIGRAM
     Dates: start: 20210119
  21. HEPARIN [Concomitant]
     Active Substance: HEPARIN SODIUM
     Dosage: 20 MILLILITER
     Dates: start: 20210228, end: 20210301
  22. GRASIN [Concomitant]
     Dosage: 300 MICROGRAM
     Dates: start: 20210223, end: 20210223
  23. HEMOSOL [Concomitant]
     Dosage: 10 UNK
     Dates: start: 20210228, end: 20210301
  24. INSTILLAGEL [Concomitant]
     Active Substance: CHLORHEXIDINE GLUCONATE\LIDOCAINE HYDROCHLORIDE
     Dosage: 11 MILLILITER
     Dates: start: 20210228, end: 20210228
  25. MULTIBIC [Concomitant]
     Active Substance: CALCIUM CHLORIDE\DEXTROSE\MAGNESIUM CHLORIDE\SODIUM BICARBONATE\SODIUM CHLORIDE
     Dosage: 20 UNK
     Dates: start: 20210228, end: 20210228
  26. PROPACETAMOL HYDROCHLORIDE [Concomitant]
     Active Substance: PROPACETAMOL HYDROCHLORIDE
     Dosage: 1 GRAM
     Dates: start: 20210301, end: 20210302
  27. NICARDIPINE HYDROCHLORIDE [Concomitant]
     Active Substance: NICARDIPINE HYDROCHLORIDE
     Dosage: 1-2 MILLIGRAM
     Dates: start: 20210301, end: 20210302
  28. CEFTRIAXONE [Concomitant]
     Active Substance: CEFTRIAXONE
     Dosage: 2 GRAM
     Dates: start: 20210301, end: 20210302
  29. RABEPRAZOLE SODIUM [Concomitant]
     Active Substance: RABEPRAZOLE SODIUM
     Dosage: 10 MILLIGRAM
     Dates: start: 20210301, end: 20210302

REACTIONS (1)
  - Pancytopenia [Not Recovered/Not Resolved]

NARRATIVE: CASE EVENT DATE: 20210302
